FAERS Safety Report 13452513 (Version 1)
Quarter: 2017Q2

REPORT INFORMATION
  Report Type: Spontaneous
  Country: US (occurrence: US)
  Receive Date: 20170418
  Receipt Date: 20170418
  Transmission Date: 20170830
  Serious: No
  Sender: FDA-Public Use
  Company Number: US-TEVA-642203USA

PATIENT
  Sex: Male

DRUGS (2)
  1. WARFARIN [Suspect]
     Active Substance: WARFARIN
     Indication: THROMBOPHLEBITIS
     Dosage: DAILY DOSE OF 4 MG
  2. WARFARIN [Suspect]
     Active Substance: WARFARIN
     Indication: ATRIAL FIBRILLATION

REACTIONS (6)
  - Contusion [Unknown]
  - Vein discolouration [Unknown]
  - Rash [Unknown]
  - Alopecia [Unknown]
  - Hair disorder [Unknown]
  - Wrong technique in product usage process [Unknown]
